FAERS Safety Report 4522960-0 (Version None)
Quarter: 2004Q4

REPORT INFORMATION
  Report Type: 
  Country: None (occurrence: None)
  Receive Date: 20041210
  Receipt Date: 20041130
  Transmission Date: 20050328
  Serious: Yes (Other)
  Sender: FDA-Public Use
  Company Number: US-JNJFOC-20041200143

PATIENT
  Sex: Female
  Weight: 37.2 kg

DRUGS (11)
  1. REMICADE [Suspect]
     Indication: CROHN'S DISEASE
     Route: 042
  2. LEVAQUIN [Concomitant]
  3. IBUPROFEN [Concomitant]
  4. ZINC SULFATE [Concomitant]
  5. PREDNISOLONE [Concomitant]
  6. METRONIDAZOLE [Concomitant]
  7. TRAMADOL HCL [Concomitant]
     Dosage: PRN
  8. TYLENOL (CAPLET) [Concomitant]
  9. AZATHIOPRINE [Concomitant]
  10. FOLIC ACID [Concomitant]
  11. ASACOL [Concomitant]

REACTIONS (4)
  - DYSPNOEA [None]
  - ERYTHEMA [None]
  - INFUSION RELATED REACTION [None]
  - SWOLLEN TONGUE [None]
